FAERS Safety Report 19964287 (Version 1)
Quarter: 2021Q4

REPORT INFORMATION
  Report Type: Spontaneous
  Country: US (occurrence: US)
  Receive Date: 20211018
  Receipt Date: 20211018
  Transmission Date: 20220303
  Serious: Yes (Death)
  Sender: FDA-Public Use
  Company Number: US-AVEO ONCOLOGY-2021-AVEO-US003631

PATIENT

DRUGS (29)
  1. FOTIVDA [Suspect]
     Active Substance: TIVOZANIB HYDROCHLORIDE
     Indication: Renal cell carcinoma
     Dosage: 1.34 MG, DAILY FOR 21 DAYS THEN 7 DAYS OFF
     Route: 048
  2. ALPRAZOLAM [Concomitant]
     Active Substance: ALPRAZOLAM
  3. AMLODIPINE [Concomitant]
     Active Substance: AMLODIPINE BESYLATE
  4. ASPIRIN [Concomitant]
     Active Substance: ASPIRIN
  5. ATORVASTATIN [Concomitant]
     Active Substance: ATORVASTATIN
  6. CIPRO [Concomitant]
     Active Substance: CIPROFLOXACIN HYDROCHLORIDE
  7. DENOSUMAB [Concomitant]
     Active Substance: DENOSUMAB
  8. DEXAMETHASONE [Concomitant]
     Active Substance: DEXAMETHASONE
  9. DICLOFENAC [Concomitant]
     Active Substance: DICLOFENAC
  10. DOXYCYCLINE [Concomitant]
     Active Substance: DOXYCYCLINE
  11. ELIQUIS [Concomitant]
     Active Substance: APIXABAN
  12. ENOXAPARIN [Concomitant]
     Active Substance: ENOXAPARIN
  13. EVEROLIMUS [Concomitant]
     Active Substance: EVEROLIMUS
  14. FUROSEMIDE [Concomitant]
     Active Substance: FUROSEMIDE
  15. GLUCAGON [Concomitant]
     Active Substance: GLUCAGON
  16. DEXTROSE [Concomitant]
     Active Substance: DEXTROSE
  17. HYDRALAZINE [Concomitant]
     Active Substance: HYDRALAZINE HYDROCHLORIDE
  18. IBUPROFEN [Concomitant]
     Active Substance: IBUPROFEN
  19. LANTUS [Concomitant]
     Active Substance: INSULIN GLARGINE
  20. LENVIMA [Concomitant]
     Active Substance: LENVATINIB
  21. LOMOTIL [Concomitant]
     Active Substance: ATROPINE SULFATE\DIPHENOXYLATE HYDROCHLORIDE
  22. METOPROLOL [Concomitant]
     Active Substance: METOPROLOL
  23. METRONIDAZOLE [Concomitant]
     Active Substance: METRONIDAZOLE
  24. NOVOLOG [Concomitant]
     Active Substance: INSULIN ASPART
  25. PROTONIX [Concomitant]
     Active Substance: PANTOPRAZOLE SODIUM
  26. PROAIR HFA [Concomitant]
     Active Substance: ALBUTEROL SULFATE
  27. PROCHLORPERAZINE [Concomitant]
     Active Substance: PROCHLORPERAZINE
  28. SPIRONOLACTONE [Concomitant]
     Active Substance: SPIRONOLACTONE
  29. TORSEMIDE [Concomitant]
     Active Substance: TORSEMIDE

REACTIONS (1)
  - Disease progression [Fatal]
